FAERS Safety Report 9100359 (Version 3)
Quarter: 2013Q2

REPORT INFORMATION
  Report Type: Spontaneous
  Country: US (occurrence: US)
  Receive Date: 20130214
  Receipt Date: 20130417
  Transmission Date: 20140414
  Serious: Yes (Hospitalization)
  Sender: FDA-Public Use
  Company Number: US-BAYER-2013-017217

PATIENT
  Age: 26 Year
  Sex: Female
  Weight: 139 kg

DRUGS (5)
  1. BEYAZ [Suspect]
     Dosage: UNK
     Dates: start: 201103, end: 20110904
  2. FLEXERIL [Concomitant]
  3. PERCOCET [Concomitant]
  4. STEROIDS [Concomitant]
  5. MORPHINE [Concomitant]

REACTIONS (2)
  - Deep vein thrombosis [Recovering/Resolving]
  - Pulmonary embolism [Recovering/Resolving]
